FAERS Safety Report 12790205 (Version 2)
Quarter: 2016Q4

REPORT INFORMATION
  Report Type: Spontaneous
  Country: US (occurrence: US)
  Receive Date: 20160928
  Receipt Date: 20161019
  Transmission Date: 20170207
  Serious: Yes (Other)
  Sender: FDA-Public Use
  Company Number: US-BRISTOL-MYERS SQUIBB COMPANY-BMS-2016-078108

PATIENT
  Sex: Male
  Weight: 64.8 kg

DRUGS (1)
  1. ELIQUIS [Suspect]
     Active Substance: APIXABAN
     Indication: THROMBOSIS PROPHYLAXIS
     Dosage: 5 MG, BID
     Route: 048

REACTIONS (5)
  - Gingival bleeding [Recovered/Resolved]
  - Swollen tongue [Unknown]
  - Increased tendency to bruise [Unknown]
  - Gastrointestinal motility disorder [Unknown]
  - Dyspnoea [Unknown]
